FAERS Safety Report 15373515 (Version 1)
Quarter: 2018Q3

REPORT INFORMATION
  Report Type: Spontaneous
  Country: US (occurrence: US)
  Receive Date: 20180912
  Receipt Date: 20180912
  Transmission Date: 20181010
  Serious: No
  Sender: FDA-Public Use
  Company Number: US-GLENMARK PHARMACEUTICALS-2018GMK036448

PATIENT

DRUGS (1)
  1. IMIQUIMOD. [Suspect]
     Active Substance: IMIQUIMOD
     Indication: SKIN CANCER
     Dosage: UNK
     Route: 065
     Dates: start: 20180625, end: 20180705

REACTIONS (6)
  - Myalgia [Unknown]
  - Product use in unapproved indication [Unknown]
  - Application site swelling [Unknown]
  - Administration site warmth [Unknown]
  - Pain in extremity [Unknown]
  - Application site pruritus [Unknown]

NARRATIVE: CASE EVENT DATE: 20180702
